FAERS Safety Report 5688056-X (Version None)
Quarter: 2008Q1

REPORT INFORMATION
  Report Type: 
  Country: None (occurrence: None)
  Receive Date: 20080327
  Receipt Date: 20080318
  Transmission Date: 20080703
  Serious: Yes (Hospitalization)
  Sender: FDA-Public Use
  Company Number: 163-21880-07120211

PATIENT
  Age: 72 Year
  Sex: Female

DRUGS (5)
  1. REVLIMID [Suspect]
     Indication: CHRONIC LYMPHOCYTIC LEUKAEMIA
     Dosage: 5 MG, 1 IN 2 D, ORAL
     Route: 048
     Dates: start: 20060406, end: 20071031
  2. FOSAMAX [Concomitant]
  3. VALTREX [Concomitant]
  4. PRILOSEC [Concomitant]
  5. LOMOTIL [Concomitant]

REACTIONS (9)
  - ASCITES [None]
  - CONSTIPATION [None]
  - FATIGUE [None]
  - HAEMATOCRIT DECREASED [None]
  - HAEMOGLOBIN DECREASED [None]
  - PERITONEAL HAEMORRHAGE [None]
  - SPLENIC HAEMORRHAGE [None]
  - SPLENOMEGALY [None]
  - VOMITING [None]
